FAERS Safety Report 6332075-7 (Version None)
Quarter: 2009Q3

REPORT INFORMATION
  Report Type: 
  Country: None (occurrence: None)
  Receive Date: 20090828
  Receipt Date: 20070904
  Transmission Date: 20100115
  Serious: Yes (Other)
  Sender: FDA-Public Use
  Company Number: US-ASTRAZENECA-2007UW02878

PATIENT
  Age: 53 Year
  Sex: Male
  Weight: 115.2 kg

DRUGS (19)
  1. SEROQUEL [Suspect]
     Indication: SCHIZOPHRENIA
     Dosage: 25 - 400 MG
     Route: 048
     Dates: start: 20010712
  2. SEROQUEL [Suspect]
     Indication: BIPOLAR DISORDER
     Dosage: 25 - 400 MG
     Route: 048
     Dates: start: 20010712
  3. SEROQUEL [Suspect]
     Dosage: 25 MG, 50 MG, 100 MG, 200 MG
     Route: 048
     Dates: start: 20010801
  4. SEROQUEL [Suspect]
     Dosage: 25 MG, 50 MG, 100 MG, 200 MG
     Route: 048
     Dates: start: 20010801
  5. XANAX [Concomitant]
  6. KLONOPIN [Concomitant]
     Dates: start: 19960101, end: 20020101
  7. ZOLOFT [Concomitant]
     Dosage: 50 - 100 MG
     Dates: start: 19980910
  8. LITHIUM CARBONATE [Concomitant]
     Dates: start: 19980910
  9. LOPRESSOR [Concomitant]
     Dates: start: 20020530
  10. CLONAZEPAM [Concomitant]
     Dosage: 0.5 - 1 MG
     Dates: start: 19980910
  11. ASPIRIN [Concomitant]
     Dates: start: 20020530
  12. AVAPRO [Concomitant]
     Dates: start: 20020530
  13. CLARITIN [Concomitant]
     Dates: start: 20020530
  14. PRIMIDONE [Concomitant]
     Indication: ESSENTIAL TREMOR
     Dosage: 100 - 150 MG
     Dates: start: 20020530
  15. BENTYL [Concomitant]
     Dates: start: 20040606
  16. PREVACID [Concomitant]
     Dates: start: 20040606
  17. PRILOSEC [Concomitant]
     Indication: GASTROOESOPHAGEAL REFLUX DISEASE
     Dates: start: 20060930
  18. ACTOS [Concomitant]
     Dates: start: 20050910
  19. ZOCOR [Concomitant]
     Indication: DYSLIPIDAEMIA
     Dates: start: 20050910

REACTIONS (9)
  - BLOOD CHOLESTEROL INCREASED [None]
  - BLOOD TRIGLYCERIDES INCREASED [None]
  - DEMENTIA [None]
  - DIABETES MELLITUS [None]
  - DIABETIC NEUROPATHY [None]
  - HYPERCHOLESTEROLAEMIA [None]
  - NEUROPATHY PERIPHERAL [None]
  - TYPE 1 DIABETES MELLITUS [None]
  - TYPE 2 DIABETES MELLITUS [None]
